FAERS Safety Report 25823755 (Version 1)
Quarter: 2025Q3

REPORT INFORMATION
  Report Type: Spontaneous
  Country: US (occurrence: None)
  Receive Date: 20250918
  Receipt Date: 20250918
  Transmission Date: 20251021
  Serious: No
  Sender: FDA-CTU
  Company Number: None

PATIENT
  Age: 25 Year
  Sex: Female
  Weight: 74.25 kg

DRUGS (4)
  1. WINLEVI [Suspect]
     Active Substance: CLASCOTERONE
     Indication: Acne
     Dosage: FREQUENCY : TWICE A DAY;?
     Route: 061
     Dates: start: 20250827, end: 20250918
  2. Azeleic acid [Concomitant]
  3. EPIDUO [Concomitant]
     Active Substance: ADAPALENE\BENZOYL PEROXIDE
  4. Adapelene [Concomitant]

REACTIONS (3)
  - Hormone level abnormal [None]
  - Intermenstrual bleeding [None]
  - Breast pain [None]

NARRATIVE: CASE EVENT DATE: 20250918
